FAERS Safety Report 9982365 (Version 2)
Quarter: 2014Q1

REPORT INFORMATION
  Report Type: Report from Study
  Country: PR (occurrence: PR)
  Receive Date: 20140307
  Receipt Date: 20140307
  Transmission Date: 20141002
  Serious: No
  Sender: FDA-Public Use
  Company Number: PR-ABBVIE-13P-131-1040782-00

PATIENT
  Sex: Female
  Weight: 56.75 kg

DRUGS (5)
  1. HUMIRA [Suspect]
     Indication: RHEUMATOID ARTHRITIS
     Route: 058
  2. PREDNISONE [Concomitant]
     Indication: RHEUMATOID ARTHRITIS
     Dosage: HALF A TAB
     Route: 048
  3. PLAQUENIL [Concomitant]
     Indication: PRODUCT USED FOR UNKNOWN INDICATION
     Route: 048
  4. TRAMADOL [Concomitant]
     Indication: PAIN
     Route: 048
  5. NEURONTIN [Concomitant]
     Indication: INFLAMMATION
     Route: 048

REACTIONS (4)
  - Thyroid disorder [Unknown]
  - Injection site discolouration [Unknown]
  - Contusion [Recovered/Resolved]
  - Blood glucose increased [Unknown]
